FAERS Safety Report 7090888-0 (Version None)
Quarter: 2010Q4

REPORT INFORMATION
  Report Type: 
  Country: None (occurrence: None)
  Receive Date: 20101109
  Receipt Date: 20101029
  Transmission Date: 20110411
  Serious: Yes (Hospitalization)
  Sender: FDA-Public Use
  Company Number: HU-AMGEN-QUU432622

PATIENT

DRUGS (4)
  1. ENBREL [Suspect]
     Indication: RHEUMATOID ARTHRITIS
     Dosage: 50 MG, QWK
     Route: 058
     Dates: start: 20100426, end: 20100712
  2. LEFLUNOMIDE [Concomitant]
     Dosage: 10 MG, QD
     Dates: start: 20091101
  3. METHYLPREDNISOLONE [Concomitant]
     Dosage: 4 MG, QD
     Dates: start: 19980101
  4. METHOTREXATE [Concomitant]
     Dosage: 15 MG, QWK
     Route: 030
     Dates: start: 20090101

REACTIONS (2)
  - DYSHIDROSIS [None]
  - PYODERMA [None]
